FAERS Safety Report 10624816 (Version 1)
Quarter: 2014Q4

REPORT INFORMATION
  Report Type: Other
  Country: DE (occurrence: DE)
  Receive Date: 20141204
  Receipt Date: 20141204
  Transmission Date: 20150529
  Serious: Yes (Other)
  Sender: FDA-Public Use
  Company Number: DE-SUN PHARMACEUTICAL INDUSTRIES LTD-2014SUN02705

PATIENT
  Age: 35 Year
  Sex: Female
  Weight: 84 kg

DRUGS (7)
  1. IMPFSTOFF [Concomitant]
     Indication: IMMUNISATION
     Dosage: DATE AND KIND OF VACCINATION UNKNOWN
     Route: 030
  2. DIAZEPAM. [Concomitant]
     Active Substance: DIAZEPAM
     Indication: ANXIETY DISORDER
     Dosage: 2.5 MG/DAY, BETWEEN GW 2+4 AND 6+5
     Route: 048
  3. PASPERTIN [Concomitant]
     Active Substance: METOCLOPRAMIDE HYDROCHLORIDE
     Indication: NAUSEA
     Route: 048
  4. TARDYFERON [Concomitant]
     Active Substance: FERROUS SULFATE\FOLIC ACID
     Indication: RESTLESS LEGS SYNDROME
     Route: 048
  5. CIPRALEX [Concomitant]
     Active Substance: ESCITALOPRAM OXALATE
     Dosage: 20 MG/DAY, UNK
  6. VENLAFAXINE HYDROCHLORIDE 37.5 MG TABLET [Suspect]
     Active Substance: VENLAFAXINE HYDROCHLORIDE
     Indication: ANXIETY DISORDER
     Dosage: 112.5 MG/DAY,
     Route: 048
     Dates: start: 20131118, end: 20140707
  7. CIPRALEX [Concomitant]
     Active Substance: ESCITALOPRAM OXALATE
     Indication: ANXIETY DISORDER
     Dosage: 30 MG/DAY,
     Route: 048

REACTIONS (3)
  - Foetal death [Recovered/Resolved]
  - Stillbirth [Recovered/Resolved]
  - Exposure during pregnancy [Unknown]
